FAERS Safety Report 6793511-5 (Version None)
Quarter: 2010Q2

REPORT INFORMATION
  Report Type: 
  Country: None (occurrence: None)
  Receive Date: 20100624
  Receipt Date: 20100614
  Transmission Date: 20101027
  Serious: Yes (Death)
  Sender: FDA-Public Use
  Company Number: US-MYLANLABS-2010S1007038

PATIENT
  Age: 34 Year
  Sex: Male
  Weight: 123.38 kg

DRUGS (7)
  1. CLOZAPINE [Suspect]
     Indication: SCHIZOAFFECTIVE DISORDER
     Route: 048
     Dates: start: 20041101, end: 20090901
  2. CLOZAPINE [Suspect]
     Route: 048
     Dates: start: 20041101, end: 20090901
  3. RISPERDAL [Concomitant]
  4. DEPAKOTE ER [Concomitant]
  5. ZOCOR [Concomitant]
  6. COLACE [Concomitant]
  7. METAMUCIL-2 [Concomitant]

REACTIONS (1)
  - MYOCARDIAL INFARCTION [None]
